FAERS Safety Report 6562291-0 (Version None)
Quarter: 2010Q1

REPORT INFORMATION
  Report Type: 
  Country: None (occurrence: None)
  Receive Date: 20100130
  Receipt Date: 20091106
  Transmission Date: 20100710
  Serious: No
  Sender: FDA-Public Use
  Company Number: US-ABBOTT-09P-163-0607417-00

PATIENT
  Sex: Female
  Weight: 57.658 kg

DRUGS (8)
  1. HUMIRA [Suspect]
     Indication: RHEUMATOID ARTHRITIS
     Dates: start: 20070227, end: 20090904
  2. HUMIRA [Suspect]
     Dates: start: 20090904
  3. METHOTREXATE [Concomitant]
     Indication: DRUG USE FOR UNKNOWN INDICATION
     Dates: start: 20070101
  4. FOLIC ACID [Concomitant]
     Indication: DRUG USE FOR UNKNOWN INDICATION
  5. TOPAMAX [Concomitant]
     Indication: DRUG USE FOR UNKNOWN INDICATION
  6. DIOVAN [Concomitant]
     Indication: DRUG USE FOR UNKNOWN INDICATION
  7. AMIOCIPINE [Concomitant]
     Indication: DRUG USE FOR UNKNOWN INDICATION
  8. SUMATRIPTAN SUCCINATE [Concomitant]
     Indication: MIGRAINE
     Dates: start: 20091023

REACTIONS (2)
  - ARTHRITIS [None]
  - EPICONDYLITIS [None]
